FAERS Safety Report 11471541 (Version 2)
Quarter: 2015Q3

REPORT INFORMATION
  Report Type: Spontaneous
  Country: US (occurrence: US)
  Receive Date: 20150903
  Receipt Date: 20150903
  Transmission Date: 20151125
  Serious: No
  Sender: FDA-Public Use
  Company Number: US-ELI_LILLY_AND_COMPANY-US201203000558

PATIENT
  Age: 41 Year
  Sex: Female

DRUGS (2)
  1. CYMBALTA [Suspect]
     Active Substance: DULOXETINE HYDROCHLORIDE
     Dosage: 20 MG, QD
  2. CYMBALTA [Suspect]
     Active Substance: DULOXETINE HYDROCHLORIDE
     Indication: DEPRESSION
     Dosage: 30 MG, QD
     Dates: start: 201110, end: 201202

REACTIONS (7)
  - Adverse event [Recovered/Resolved]
  - Disturbance in attention [Recovered/Resolved]
  - Drug withdrawal syndrome [Unknown]
  - Nausea [Recovered/Resolved]
  - Head discomfort [Recovered/Resolved]
  - Dizziness [Unknown]
  - Balance disorder [Recovered/Resolved]
